FAERS Safety Report 4806319-4 (Version None)
Quarter: 2005Q4

REPORT INFORMATION
  Report Type: 
  Country: None (occurrence: None)
  Receive Date: 20051021
  Receipt Date: 20050510
  Transmission Date: 20060501
  Serious: Yes (Hospitalization)
  Sender: FDA-Public Use
  Company Number: PL-ROCHE-404287

PATIENT
  Age: 57 Year
  Sex: Female

DRUGS (4)
  1. CAPECITABINE [Suspect]
     Dosage: GIVEN ON DAYS 1 - 14 OF A 21 DAY CYCLE.
     Route: 048
     Dates: start: 20041229
  2. FENTANYL CITRATE [Concomitant]
     Dates: start: 20041208
  3. KETOPROFEN [Concomitant]
     Dates: start: 20041115
  4. METOCLOPRAMIDE HCL [Concomitant]
     Dates: start: 20041229

REACTIONS (1)
  - VITH NERVE PARALYSIS [None]
